FAERS Safety Report 5868108-1 (Version None)
Quarter: 2008Q3

REPORT INFORMATION
  Report Type: 
  Country: None (occurrence: None)
  Receive Date: 20080902
  Receipt Date: 20080507
  Transmission Date: 20090109
  Serious: No
  Sender: FDA-Public Use
  Company Number: US-ABBOTT-08P-163-0449035-00

PATIENT
  Sex: Female
  Weight: 79.45 kg

DRUGS (3)
  1. DEPAKOTE ER [Suspect]
     Indication: BIPOLAR DISORDER
     Route: 048
     Dates: start: 20080318, end: 20080423
  2. DEPAKOTE ER [Suspect]
     Route: 048
  3. ZOLPIDEM TARTRATE [Concomitant]
     Indication: INSOMNIA
     Route: 048
     Dates: start: 20080418, end: 20080423

REACTIONS (4)
  - AGITATION [None]
  - BIPOLAR DISORDER [None]
  - INSOMNIA [None]
  - OEDEMA PERIPHERAL [None]
